FAERS Safety Report 6854052-X (Version None)
Quarter: 2010Q3

REPORT INFORMATION
  Report Type: 
  Country: None (occurrence: None)
  Receive Date: 20100717
  Receipt Date: 20071226
  Transmission Date: 20110219
  Serious: No
  Sender: FDA-Public Use
  Company Number: US-PFIZER INC-2007108949

PATIENT
  Sex: Female
  Weight: 62.727 kg

DRUGS (2)
  1. CHANTIX [Suspect]
     Indication: SMOKING CESSATION THERAPY
     Route: 048
     Dates: start: 20071202
  2. SYNTHROID [Concomitant]

REACTIONS (7)
  - FLATULENCE [None]
  - GASTROENTERITIS VIRAL [None]
  - HEADACHE [None]
  - MALAISE [None]
  - NAUSEA [None]
  - VOMITING [None]
  - WEIGHT INCREASED [None]
